FAERS Safety Report 10401829 (Version 2)
Quarter: 2014Q3

REPORT INFORMATION
  Report Type: Report from Study
  Country: US (occurrence: None)
  Receive Date: 20140813
  Receipt Date: 20140820
  Transmission Date: 20150326
  Serious: Yes (Hospitalization, Other)
  Sender: FDA-Public Use
  Company Number: ADR-2014-01370

PATIENT
  Age: 44 Year
  Sex: Female

DRUGS (4)
  1. CLONIDINE. [Suspect]
     Active Substance: CLONIDINE
  2. BUPIVACAINE [Suspect]
     Active Substance: BUPIVACAINE
  3. COMPOUNDED BACLOFEN INTRATHECAL [Suspect]
     Active Substance: BACLOFEN
     Indication: CANCER PAIN
  4. DILAUDID [Suspect]
     Active Substance: HYDROMORPHONE HYDROCHLORIDE
     Indication: CANCER PAIN

REACTIONS (4)
  - Discomfort [None]
  - Paraesthesia [None]
  - Visual impairment [None]
  - Pain [None]

NARRATIVE: CASE EVENT DATE: 20140125
